FAERS Safety Report 4614223-X (Version None)
Quarter: 2005Q1

REPORT INFORMATION
  Report Type: 
  Country: None (occurrence: None)
  Receive Date: 20050315
  Receipt Date: 20050224
  Transmission Date: 20050727
  Serious: Yes (Other)
  Sender: FDA-Public Use
  Company Number: B0372243A

PATIENT
  Age: 35 Year
  Sex: Female

DRUGS (1)
  1. ZYBAN [Suspect]
     Indication: EX-SMOKER
     Dosage: SEE DOSAGE TEXT

REACTIONS (16)
  - AGITATION [None]
  - DECREASED APPETITE [None]
  - DEPERSONALISATION [None]
  - DRUG EFFECT DECREASED [None]
  - GRANDIOSITY [None]
  - HALLUCINATION [None]
  - IDEAS OF REFERENCE [None]
  - ILLUSION [None]
  - INSOMNIA [None]
  - IRRITABILITY [None]
  - MANIA [None]
  - PARANOIA [None]
  - PSYCHOTIC DISORDER [None]
  - SUSPICIOUSNESS [None]
  - TENSION [None]
  - TOBACCO ABUSE [None]
